FAERS Safety Report 5608874-3 (Version None)
Quarter: 2008Q1

REPORT INFORMATION
  Report Type: 
  Country: None (occurrence: None)
  Receive Date: 20080131
  Receipt Date: 20080123
  Transmission Date: 20080703
  Serious: Yes (Hospitalization)
  Sender: FDA-Public Use
  Company Number: GB-NOVOPROD-271354

PATIENT
  Sex: Female
  Weight: 61.04 kg

DRUGS (11)
  1. INSULIN DETEMIR FLEXPEN [Suspect]
     Indication: INSULIN-REQUIRING TYPE 2 DIABETES MELLITUS
     Dosage: 35 IU, QD
     Route: 058
     Dates: start: 20050418
  2. NOVORAPID FLEXPEN [Suspect]
     Indication: INSULIN-REQUIRING TYPE 2 DIABETES MELLITUS
     Dosage: 52 IU, QD
     Route: 048
     Dates: start: 20060422
  3. WARFARIN SODIUM [Concomitant]
     Dosage: 1 MG, QD
     Route: 048
     Dates: start: 20010417
  4. DIGOXIN [Concomitant]
     Dosage: 250 UG, QD
     Route: 048
     Dates: start: 19911004
  5. ATORVASTATIN [Concomitant]
     Dosage: 10 MG, QD
     Route: 048
     Dates: start: 20040101
  6. FUROSEMIDE [Concomitant]
     Dosage: 40 MG, QD
     Route: 048
     Dates: start: 20030801
  7. RAMIPRIL [Concomitant]
     Dosage: 1.25 MG, QD
     Route: 048
     Dates: start: 20070919
  8. METFORMIN HCL [Concomitant]
     Dosage: 1 G, QD
     Route: 048
     Dates: start: 20041202
  9. VERPAMIL [Concomitant]
     Dosage: 360 MG, QD
     Route: 048
     Dates: start: 20010308
  10. BISOPROLOL [Concomitant]
     Dosage: 1.25 MG, QD
     Route: 048
     Dates: start: 20071214
  11. MOVICOL                            /01053601/ [Concomitant]
     Dosage: 2 UNK, QD
     Route: 048
     Dates: start: 20040101

REACTIONS (1)
  - RADIUS FRACTURE [None]
